FAERS Safety Report 4333486-1 (Version None)
Quarter: 2004Q2

REPORT INFORMATION
  Report Type: 
  Country: None (occurrence: None)
  Receive Date: 20040401
  Receipt Date: 20040322
  Transmission Date: 20050107
  Serious: Yes (Death, Hospitalization, Other)
  Sender: FDA-Public Use
  Company Number: USA-2003-0009522

PATIENT
  Age: 49 Year
  Sex: Male

DRUGS (1)
  1. OXYCONTIN [Suspect]
     Indication: PAIN
     Dosage: 40 MG

REACTIONS (10)
  - ABNORMAL BEHAVIOUR [None]
  - ACQUIRED IMMUNODEFICIENCY SYNDROME [None]
  - AGGRESSION [None]
  - COMPLETED SUICIDE [None]
  - CONDITION AGGRAVATED [None]
  - DRUG WITHDRAWAL SYNDROME [None]
  - MOOD SWINGS [None]
  - OPEN WOUND [None]
  - POLYSUBSTANCE ABUSE [None]
  - TACHYCARDIA [None]
